FAERS Safety Report 7295321-1 (Version None)
Quarter: 2011Q1

REPORT INFORMATION
  Report Type: 
  Country: None (occurrence: None)
  Receive Date: 20110216
  Receipt Date: 20110207
  Transmission Date: 20110831
  Serious: Yes (Disabling, Other)
  Sender: FDA-Public Use
  Company Number: SE-NAPPMUNDI-GBR-2010-0006718

PATIENT
  Age: 84 Year
  Sex: Male

DRUGS (2)
  1. ALVEDON [Concomitant]
     Indication: PAIN
  2. NORSPAN 5 MIKROGRAM/ TIMME DEPOTPLASTER [Suspect]
     Indication: PRODUCT USED FOR UNKNOWN INDICATION
     Dosage: 5 MCG, Q1H
     Route: 062
     Dates: start: 20100529, end: 20100602

REACTIONS (4)
  - THROMBOSIS [None]
  - PARAESTHESIA [None]
  - NAUSEA [None]
  - VERTIGO [None]
